FAERS Safety Report 9276638 (Version 1)
Quarter: 2013Q2

REPORT INFORMATION
  Report Type: Spontaneous
  Country: IT (occurrence: IT)
  Receive Date: 20130507
  Receipt Date: 20130507
  Transmission Date: 20140414
  Serious: Yes (Hospitalization)
  Sender: FDA-Public Use
  Company Number: PHHY2013IT043196

PATIENT
  Sex: Male

DRUGS (2)
  1. CARBOPLATIN [Suspect]
     Indication: BENIGN PLEURAL MESOTHELIOMA
     Dosage: 300 MG, CYCLIC DOSE
     Route: 042
     Dates: start: 20121116, end: 20130125
  2. ALIMTA [Suspect]
     Indication: BENIGN PLEURAL MESOTHELIOMA
     Dosage: 800 MG, CYCLIC DOSE
     Route: 042
     Dates: start: 20121116, end: 20130125

REACTIONS (4)
  - Movement disorder [Not Recovered/Not Resolved]
  - Dry skin [Not Recovered/Not Resolved]
  - Hypothermia [Not Recovered/Not Resolved]
  - Hypotonia [Not Recovered/Not Resolved]
